FAERS Safety Report 5310589-6 (Version None)
Quarter: 2007Q1

REPORT INFORMATION
  Report Type: 
  Country: None (occurrence: None)
  Receive Date: 20070201
  Receipt Date: 20061102
  Transmission Date: 20070707
  Serious: No
  Sender: FDA-Public Use
  Company Number: 258237

PATIENT
  Age: 63 Year
  Sex: Female

DRUGS (5)
  1. LEVEMIR [Suspect]
     Indication: DIABETES MELLITUS INSULIN-DEPENDENT
     Dosage: 4 IU, QD, SUBCUTANEOUS
     Route: 058
     Dates: start: 20061101
  2. HUMALOG [Concomitant]
  3. ACTONEL [Concomitant]
  4. SYNTHROID [Concomitant]
  5. ASPIRIN [Concomitant]

REACTIONS (1)
  - BLOOD GLUCOSE DECREASED [None]
